FAERS Safety Report 18252549 (Version 1)
Quarter: 2020Q3

REPORT INFORMATION
  Report Type: Other
  Country: CN (occurrence: CN)
  Receive Date: 20200910
  Receipt Date: 20200910
  Transmission Date: 20201103
  Serious: Yes (Other)
  Sender: FDA-Public Use
  Company Number: CN-EMD SERONO-9184660

PATIENT
  Age: 28 Year
  Sex: Female

DRUGS (2)
  1. GONAL?F [Suspect]
     Active Substance: FOLLITROPIN
     Dosage: REUSED AGAINST MEDICAL ADVICE
  2. GONAL?F [Suspect]
     Active Substance: FOLLITROPIN
     Indication: PRODUCT USED FOR UNKNOWN INDICATION

REACTIONS (1)
  - Lupus-like syndrome [Recovered/Resolved with Sequelae]
